FAERS Safety Report 6433704-X (Version None)
Quarter: 2009Q4

REPORT INFORMATION
  Report Type: 
  Country: None (occurrence: None)
  Receive Date: 20091106
  Receipt Date: 20091106
  Transmission Date: 20100525
  Serious: Yes (Life-Threatening)
  Sender: FDA-Public Use
  Company Number: None

PATIENT
  Age: 79 Year
  Sex: Male
  Weight: 57.73 kg

DRUGS (1)
  1. LORAZEPAM [Suspect]
     Indication: AGITATION
     Dosage: 2 MG TID IM
     Route: 030
     Dates: start: 20081109, end: 20081109

REACTIONS (2)
  - BRADYCARDIA [None]
  - RESPIRATORY DEPRESSION [None]
